FAERS Safety Report 7162173-X (Version None)
Quarter: 2010Q4

REPORT INFORMATION
  Report Type: 
  Country: None (occurrence: None)
  Receive Date: 20101215
  Receipt Date: 20101206
  Transmission Date: 20110411
  Serious: Yes (Hospitalization)
  Sender: FDA-Public Use
  Company Number: DE-ROCHE-736101

PATIENT
  Sex: Female
  Weight: 70 kg

DRUGS (8)
  1. BEVACIZUMAB [Suspect]
     Dosage: DAY 1 AND 15 OF A CYCLE OF 4 WEEKS, 5 CYCLES, 10 APPLICATIONS RESPECTIVELY
     Route: 042
     Dates: start: 20100211, end: 20100614
  2. BEVACIZUMAB [Suspect]
     Dosage: DAY 1 AND 15 OF A CYCLE OF 4 WEEKS
     Route: 042
     Dates: end: 20100906
  3. ZOLEDRONATE [Suspect]
     Route: 042
     Dates: start: 20090626
  4. ZOLEDRONATE [Suspect]
     Route: 042
     Dates: end: 20100920
  5. PACLITAXEL [Concomitant]
     Dosage: DAY 1, 8, 15 OF A CYCLE
     Route: 042
     Dates: start: 20100211, end: 20100906
  6. METOPROLOL [Concomitant]
  7. RAMIPRIL [Concomitant]
  8. CORTICOSTEROID NOS [Concomitant]
     Dosage: GIVEN ON THE DAYS OF CHEMOTHERAPY
     Route: 048
     Dates: start: 20100211

REACTIONS (1)
  - OSTEONECROSIS OF JAW [None]
